FAERS Safety Report 8723172 (Version 2)
Quarter: 2012Q4

REPORT INFORMATION
  Report Type: Report from Study
  Country: GB (occurrence: GB)
  Receive Date: 20120814
  Receipt Date: 20121217
  Transmission Date: 20130627
  Serious: Yes (Hospitalization)
  Sender: FDA-Public Use
  Company Number: GB-ROCHE-1099067

PATIENT
  Age: 35 Year
  Sex: Female
  Weight: 78 kg

DRUGS (10)
  1. RITUXIMAB [Suspect]
     Indication: RHEUMATOID ARTHRITIS
     Route: 042
     Dates: start: 20070926, end: 20070926
  2. RITUXIMAB [Suspect]
     Route: 042
     Dates: start: 20071010
  3. METHOTREXATE [Concomitant]
     Route: 065
  4. CYCLIZINE [Concomitant]
     Route: 065
     Dates: start: 20070929
  5. IBUPROFEN [Concomitant]
     Route: 065
  6. CO-CODAMOL [Concomitant]
     Dosage: 30/550 mg
     Route: 065
  7. PREDNISOLONE [Concomitant]
     Route: 065
  8. FOLIC ACID [Concomitant]
     Route: 065
  9. PIRITON [Concomitant]
     Route: 042
  10. METHYLPREDNISOLONE [Concomitant]
     Route: 042

REACTIONS (4)
  - Grand mal convulsion [Recovered/Resolved]
  - Headache [Recovered/Resolved]
  - Cerebellar atrophy [Recovered/Resolved]
  - Hemiparesis [Recovered/Resolved]
